FAERS Safety Report 5353618-6 (Version None)
Quarter: 2007Q2

REPORT INFORMATION
  Report Type: 
  Country: None (occurrence: None)
  Receive Date: 20070608
  Receipt Date: 20070604
  Transmission Date: 20071010
  Serious: Yes (Other)
  Sender: FDA-Public Use
  Company Number: 2007SP001686

PATIENT
  Age: 41 Year
  Sex: Female
  Weight: 72 kg

DRUGS (1)
  1. DESLORATADINE [Suspect]
     Indication: DERMATITIS CONTACT
     Dosage: 5 MG;QD;PO
     Route: 048
     Dates: start: 20061201, end: 20061201

REACTIONS (5)
  - ANXIETY [None]
  - BRONCHOSPASM [None]
  - DRUG HYPERSENSITIVITY [None]
  - FEELING ABNORMAL [None]
  - RESPIRATORY DISORDER [None]
